FAERS Safety Report 7586625-3 (Version None)
Quarter: 2011Q3

REPORT INFORMATION
  Report Type: 
  Country: None (occurrence: None)
  Receive Date: 20110701
  Receipt Date: 20110624
  Transmission Date: 20111222
  Serious: Yes (Hospitalization)
  Sender: FDA-Public Use
  Company Number: JP-ABBOTT-09P-087-0599577-00

PATIENT
  Sex: Male
  Weight: 32.3 kg

DRUGS (7)
  1. HUMIRA [Suspect]
     Indication: JUVENILE ARTHRITIS
     Route: 058
     Dates: start: 20090527, end: 20100118
  2. METHOTREXATE [Concomitant]
     Route: 048
     Dates: start: 20110317, end: 20110414
  3. FOLIC ACID [Concomitant]
     Indication: VITAMIN SUPPLEMENTATION
     Route: 048
  4. METHOTREXATE [Concomitant]
     Indication: JUVENILE ARTHRITIS
     Route: 048
     Dates: start: 20090122
  5. NAPROXEN [Concomitant]
     Indication: JUVENILE ARTHRITIS
     Route: 048
  6. HUMIRA [Suspect]
     Route: 058
     Dates: start: 20100201
  7. PREDNISOLONE [Concomitant]
     Indication: JUVENILE ARTHRITIS
     Route: 048
     Dates: start: 20090429

REACTIONS (4)
  - AMNESIA [None]
  - ARTHRALGIA [None]
  - HERPES ZOSTER [None]
  - PYREXIA [None]
